FAERS Safety Report 9153638 (Version 2)
Quarter: 2013Q1

REPORT INFORMATION
  Report Type: Spontaneous
  Country: DE (occurrence: None)
  Receive Date: 20130204
  Receipt Date: 20130208
  Transmission Date: 20140127
  Serious: Yes (Hospitalization)
  Sender: FDA-Public Use
  Company Number: AUR-APL-2013-01022

PATIENT
  Sex: Male

DRUGS (2)
  1. BISOPROLOL [Suspect]
     Indication: PRODUCT USED FOR UNKNOWN INDICATION
  2. CANDESARTAN [Suspect]
     Dates: end: 20120622

REACTIONS (2)
  - Penile swelling [None]
  - Testicular swelling [None]
